FAERS Safety Report 23244946 (Version 1)
Quarter: 2023Q4

REPORT INFORMATION
  Report Type: Spontaneous
  Country: US (occurrence: US)
  Receive Date: 20231130
  Receipt Date: 20231130
  Transmission Date: 20240110
  Serious: Yes (Other)
  Sender: FDA-Public Use
  Company Number: US-ASTELLAS-2023US035759

PATIENT
  Age: 50 Year
  Sex: Male

DRUGS (1)
  1. XOSPATA [Suspect]
     Active Substance: GILTERITINIB
     Indication: Product used for unknown indication
     Route: 065
     Dates: start: 202303

REACTIONS (3)
  - Thrombocytopenia [Unknown]
  - Lung infiltration [Unknown]
  - Underdose [Unknown]

NARRATIVE: CASE EVENT DATE: 20230301
